FAERS Safety Report 4486666-9 (Version None)
Quarter: 2004Q4

REPORT INFORMATION
  Report Type: 
  Country: None (occurrence: None)
  Receive Date: 20041021
  Receipt Date: 20041013
  Transmission Date: 20050328
  Serious: Yes (Death, Hospitalization, Other)
  Sender: FDA-Public Use
  Company Number: 001-0981-M0000770

PATIENT
  Age: 76 Year
  Sex: Male
  Weight: 87.9978 kg

DRUGS (6)
  1. ATORVASTATIN (ATORVASTATIN) [Suspect]
     Indication: CORONARY ARTERY DISEASE
     Dosage: SEE IMAGE
     Route: 048
     Dates: start: 19990120, end: 19990317
  2. ATORVASTATIN (ATORVASTATIN) [Suspect]
     Indication: CORONARY ARTERY DISEASE
     Dosage: SEE IMAGE
     Route: 048
     Dates: start: 19990318, end: 20000114
  3. TRIAMTERENE (TRIAMTERENE) [Concomitant]
  4. MULTIVITAMINS (ASCORBIC ACID/ERGOCALCIFEROL/FOLIC ACID/NICOTINAMIDE/PA [Concomitant]
  5. ASPIRIN [Concomitant]
  6. TOCOPHEROL CONCENTRATE CAP [Concomitant]

REACTIONS (12)
  - ASTHENIA [None]
  - CARDIO-RESPIRATORY ARREST [None]
  - GRANULOMA [None]
  - HYPERHIDROSIS [None]
  - INCISIONAL HERNIA [None]
  - MALIGNANT PLEURAL EFFUSION [None]
  - METASTASES TO LIVER [None]
  - METASTATIC NEOPLASM [None]
  - NAUSEA [None]
  - PLEURAL EFFUSION [None]
  - PULMONARY CALCIFICATION [None]
  - RENAL CYST [None]
